FAERS Safety Report 8957240 (Version 1)
Quarter: 2012Q4

REPORT INFORMATION
  Report Type: Report from Study
  Country: JP (occurrence: JP)
  Receive Date: 20121210
  Receipt Date: 20121210
  Transmission Date: 20130627
  Serious: Yes (Hospitalization)
  Sender: FDA-Public Use
  Company Number: JP-ROCHE-1165953

PATIENT
  Age: 68 Year
  Sex: Male

DRUGS (6)
  1. METHOXY POLYETHYLENE GLYCOL-EPOETIN BETA [Suspect]
     Indication: NEPHROGENIC ANAEMIA
     Route: 042
     Dates: start: 20111015, end: 20111112
  2. METHOXY POLYETHYLENE GLYCOL-EPOETIN BETA [Suspect]
     Indication: NEPHROGENIC ANAEMIA
     Route: 042
     Dates: start: 20111210, end: 20111211
  3. BLOPRESS [Concomitant]
     Route: 048
     Dates: start: 20110809
  4. BAYASPIRIN [Concomitant]
     Route: 048
  5. PROTECADIN [Concomitant]
     Route: 048
  6. SENNOSIDE [Concomitant]
     Route: 048

REACTIONS (1)
  - Cerebral infarction [Recovering/Resolving]
